FAERS Safety Report 8283189-6 (Version None)
Quarter: 2012Q2

REPORT INFORMATION
  Report Type: 
  Country: None (occurrence: None)
  Receive Date: 20120413
  Receipt Date: 20120402
  Transmission Date: 20120825
  Serious: Yes (Hospitalization, Other)
  Sender: FDA-Public Use
  Company Number: US-JNJFOC-20120212393

PATIENT
  Sex: Male

DRUGS (5)
  1. MERCAPTOPURINE [Concomitant]
     Dates: start: 20060101, end: 20101101
  2. REMICADE [Suspect]
     Indication: CROHN'S DISEASE
     Route: 042
     Dates: start: 20111010, end: 20111018
  3. REMICADE [Suspect]
     Dosage: 6 MG/KG
     Route: 042
     Dates: start: 20101123
  4. ASACOL [Concomitant]
  5. CORTICOSTEROID [Concomitant]

REACTIONS (1)
  - HEPATOSPLENIC T-CELL LYMPHOMA [None]
